FAERS Safety Report 10420321 (Version 1)
Quarter: 2014Q3

REPORT INFORMATION
  Report Type: Spontaneous
  Country: IL (occurrence: None)
  Receive Date: 20140808
  Receipt Date: 20140808
  Transmission Date: 20150326
  Serious: Yes (Congenital Anomaly)
  Sender: FDA-Public Use
  Company Number: IL-145563

PATIENT

DRUGS (1)
  1. ANTI-D (ANTI-D) (NOT SPECIFIED) [Suspect]
     Active Substance: HUMAN RHO(D) IMMUNE GLOBULIN
     Indication: PROPHYLAXIS AGAINST RH ISOIMMUNISATION
     Route: 064

REACTIONS (3)
  - Maternal drugs affecting foetus [None]
  - Congenital anomaly [None]
  - Foetal exposure during pregnancy [None]
